FAERS Safety Report 23015587 (Version 1)
Quarter: 2023Q4

REPORT INFORMATION
  Report Type: Spontaneous
  Country: US (occurrence: US)
  Receive Date: 20231002
  Receipt Date: 20231002
  Transmission Date: 20240110
  Serious: Yes (Life-Threatening, Hospitalization, Other)
  Sender: FDA-Public Use
  Company Number: US-PROCTER_AND_GAMBLE-GS23105566

PATIENT
  Age: 6 Month
  Sex: Male
  Weight: 6.1 kg

DRUGS (1)
  1. ALCOHOL [Suspect]
     Active Substance: ALCOHOL
     Dosage: FLUSHED GASTRIC TUBE BY MISTAKE

REACTIONS (9)
  - Acute respiratory failure [Recovering/Resolving]
  - Aspiration [Unknown]
  - Mental status changes [Unknown]
  - Tachypnoea [Unknown]
  - Blood ethanol increased [Recovered/Resolved]
  - Blood lactic acid increased [Recovered/Resolved]
  - Exposure via mucosa [Unknown]
  - Wrong product administered [Unknown]
  - Incorrect route of product administration [Unknown]
